FAERS Safety Report 8499391-4 (Version None)
Quarter: 2012Q3

REPORT INFORMATION
  Report Type: 
  Country: None (occurrence: None)
  Receive Date: 20120710
  Receipt Date: 20120705
  Transmission Date: 20120928
  Serious: Yes (Hospitalization)
  Sender: FDA-Public Use
  Company Number: US-AMGEN-USASP2011034565

PATIENT
  Age: 61 Year
  Sex: Female

DRUGS (1)
  1. ENBREL [Suspect]
     Indication: RHEUMATOID ARTHRITIS
     Dosage: 50 MG, QWK
     Dates: start: 20100501

REACTIONS (6)
  - OSTEOARTHRITIS [None]
  - INJECTION SITE MASS [None]
  - URINARY TRACT INFECTION [None]
  - ARTHRALGIA [None]
  - JOINT SWELLING [None]
  - KNEE OPERATION [None]
